FAERS Safety Report 9275200 (Version 1)
Quarter: 2013Q2

REPORT INFORMATION
  Report Type: Spontaneous
  Country: US (occurrence: None)
  Receive Date: 20130430
  Receipt Date: 20130430
  Transmission Date: 20140414
  Serious: Yes (Hospitalization)
  Sender: FDA-Public Use
  Company Number: NSR_01124_2013

PATIENT
  Age: 69 Year
  Sex: Female

DRUGS (2)
  1. ATENOLOL [Suspect]
     Indication: PRODUCT USED FOR UNKNOWN INDICATION
     Dosage: NOT THE PRESCRIBED AMOUNT
  2. AMLODIPINE [Suspect]
     Indication: PRODUCT USED FOR UNKNOWN INDICATION
     Dosage: NOT THE PRESCRIBED AMOUNT

REACTIONS (11)
  - Suicide attempt [None]
  - Vomiting [None]
  - Somnolence [None]
  - Heart rate decreased [None]
  - Hypotension [None]
  - Hypokalaemia [None]
  - Ventricular fibrillation [None]
  - Hyporesponsive to stimuli [None]
  - Shock [None]
  - Incorrect dose administered [None]
  - Vasodilatation [None]
